FAERS Safety Report 5236527-2 (Version None)
Quarter: 2007Q1

REPORT INFORMATION
  Report Type: 
  Country: None (occurrence: None)
  Receive Date: 20070206
  Receipt Date: 20070131
  Transmission Date: 20070707
  Serious: Yes (Disabling)
  Sender: FDA-Public Use
  Company Number: 2006-150631-NL

PATIENT
  Sex: Male

DRUGS (3)
  1. DEXAMETHASONE [Suspect]
     Dosage: OPHTHALMIC
     Route: 047
  2. TIMOLOL MALEATE [Suspect]
     Dosage: DF BID OPHTHALMIC
     Route: 047
  3. CYCLOSPORINE [Concomitant]

REACTIONS (2)
  - CORNEAL DEPOSITS [None]
  - VISUAL ACUITY REDUCED [None]
